FAERS Safety Report 5256799-8 (Version None)
Quarter: 2007Q1

REPORT INFORMATION
  Report Type: 
  Country: None (occurrence: None)
  Receive Date: 20070302
  Receipt Date: 20070221
  Transmission Date: 20070707
  Serious: Yes (Death, Hospitalization)
  Sender: FDA-Public Use
  Company Number: 163-21880-07021103

PATIENT
  Age: 54 Year
  Sex: Female

DRUGS (4)
  1. REVLIMID [Suspect]
     Indication: MULTIPLE MYELOMA
     Dosage: 25 MG, 1 IN 1 D, ORAL
     Route: 048
     Dates: start: 20061025, end: 20061213
  2. OXYCONTIN [Concomitant]
  3. PROTONIX [Concomitant]
  4. HYDROCHLOROTHIAZIDE [Concomitant]

REACTIONS (3)
  - DISEASE PROGRESSION [None]
  - PANCREATITIS [None]
  - PROTEIN TOTAL INCREASED [None]
